FAERS Safety Report 23395001 (Version 3)
Quarter: 2024Q2

REPORT INFORMATION
  Report Type: Spontaneous
  Country: US (occurrence: US)
  Receive Date: 20240112
  Receipt Date: 20240417
  Transmission Date: 20240715
  Serious: No
  Sender: FDA-Public Use
  Company Number: US-SA-SAC20240108000835

PATIENT
  Sex: Male

DRUGS (9)
  1. DUPIXENT [Suspect]
     Active Substance: DUPILUMAB
     Indication: Dermatitis atopic
     Dosage: 300 MG, QOW
     Route: 058
  2. DUPIXENT [Suspect]
     Active Substance: DUPILUMAB
     Indication: Drug therapy
  3. DUPIXENT [Suspect]
     Active Substance: DUPILUMAB
     Indication: Multiple sclerosis
  4. VUMERITY [Concomitant]
     Active Substance: DIROXIMEL FUMARATE
     Dosage: UNK
  5. VUMERITY [Concomitant]
     Active Substance: DIROXIMEL FUMARATE
  6. ADVIL [Concomitant]
     Active Substance: IBUPROFEN
  7. ADVIL [Concomitant]
     Active Substance: IBUPROFEN
  8. VITAMINS NOS [Concomitant]
     Active Substance: VITAMINS
     Dosage: 50 PLUS TABLET
  9. VITAMINS NOS [Concomitant]
     Active Substance: VITAMINS

REACTIONS (11)
  - Flushing [Recovered/Resolved]
  - Dry mouth [Not Recovered/Not Resolved]
  - Somnolence [Not Recovered/Not Resolved]
  - Erythema [Recovered/Resolved]
  - Acne [Unknown]
  - Chest discomfort [Unknown]
  - Depressed mood [Unknown]
  - Device related infection [Unknown]
  - Gait disturbance [Unknown]
  - Rosacea [Unknown]
  - Product use in unapproved indication [Unknown]

NARRATIVE: CASE EVENT DATE: 20240101
